FAERS Safety Report 10076762 (Version 1)
Quarter: 2014Q2

REPORT INFORMATION
  Report Type: Spontaneous
  Country: JP (occurrence: JP)
  Receive Date: 20140414
  Receipt Date: 20140414
  Transmission Date: 20141212
  Serious: Yes (Death, Hospitalization, Other)
  Sender: FDA-Public Use
  Company Number: JP-TAKEDA-2014TJP004880

PATIENT
  Sex: Male

DRUGS (3)
  1. ACTOS TABLETS 30 [Suspect]
     Dosage: 15 MG, 1 DAY
     Route: 048
     Dates: end: 2007
  2. ACTOS TABLETS 30 [Suspect]
     Dosage: 30 MG, 1 DAY
     Route: 048
     Dates: start: 2007, end: 201106
  3. ANTIHYPERTENSIVES [Concomitant]
     Dosage: UNK
     Route: 065

REACTIONS (4)
  - Neoplasm malignant [Fatal]
  - Colon cancer [Unknown]
  - Liver function test abnormal [Unknown]
  - Oedema [Unknown]
